FAERS Safety Report 5618402-4 (Version None)
Quarter: 2008Q1

REPORT INFORMATION
  Report Type: 
  Country: None (occurrence: None)
  Receive Date: 20080207
  Receipt Date: 20071203
  Transmission Date: 20080703
  Serious: Yes (Other)
  Sender: FDA-Public Use
  Company Number: US-PURDUE-USA_2007_0031434

PATIENT
  Age: 32 Year
  Sex: Male

DRUGS (3)
  1. OXYCONTIN [Suspect]
     Indication: LOWER LIMB FRACTURE
     Dosage: 10 MG, SEE TEXT
     Dates: start: 19990630, end: 20010630
  2. VALIUM [Concomitant]
  3. SOMA [Concomitant]

REACTIONS (5)
  - COLD SWEAT [None]
  - DRUG WITHDRAWAL SYNDROME [None]
  - GASTROINTESTINAL DISORDER [None]
  - NIGHT SWEATS [None]
  - SUICIDAL IDEATION [None]
